FAERS Safety Report 18406465 (Version 2)
Quarter: 2020Q4

REPORT INFORMATION
  Report Type: Report from Study
  Country: US (occurrence: US)
  Receive Date: 20201020
  Receipt Date: 20201106
  Transmission Date: 20210114
  Serious: Yes (Hospitalization)
  Sender: FDA-Public Use
  Company Number: US-BAYER-2020-222240

PATIENT
  Age: 64 Year
  Sex: Female

DRUGS (2)
  1. VITRAKVI [Suspect]
     Active Substance: LAROTRECTINIB
     Indication: BREAST CANCER
     Dosage: 100 MG, BID (5  DOSES)
     Route: 048
     Dates: start: 20200930, end: 202010
  2. VITRAKVI [Suspect]
     Active Substance: LAROTRECTINIB
     Indication: BREAST CANCER
     Dosage: 100 MG, QOD
     Dates: start: 20201019

REACTIONS (4)
  - Vomiting [Unknown]
  - Somnolence [Unknown]
  - Gait inability [Unknown]
  - Illness [Recovered/Resolved]

NARRATIVE: CASE EVENT DATE: 2020
